FAERS Safety Report 13136698 (Version 2)
Quarter: 2019Q1

REPORT INFORMATION
  Report Type: Spontaneous
  Country: CA (occurrence: CA)
  Receive Date: 20170123
  Receipt Date: 20190128
  Transmission Date: 20190417
  Serious: Yes (Life-Threatening)
  Sender: FDA-Public Use
  Company Number: CA-ROCHE-1882874

PATIENT
  Age: 75 Year
  Sex: Female
  Weight: 54.48 kg

DRUGS (3)
  1. ACTIVASE [Suspect]
     Active Substance: ALTEPLASE
     Indication: ISCHAEMIC STROKE
     Dosage: THERAPY DURATION: ONCE?LIQUID INTRAVENOUS (10% BOLUS AND REMAINING AS INFUSION)
     Route: 042
  2. ACETYLSALICYLIC ACID [Concomitant]
     Active Substance: ASPIRIN
     Route: 065
  3. CLOPIDOGREL [Concomitant]
     Active Substance: CLOPIDOGREL BISULFATE
     Route: 065

REACTIONS (5)
  - Haemorrhage intracranial [Not Recovered/Not Resolved]
  - Haemorrhagic transformation stroke [Not Recovered/Not Resolved]
  - Product quality issue [Unknown]
  - Neurological decompensation [Not Recovered/Not Resolved]
  - Terminal state [Not Recovered/Not Resolved]
